FAERS Safety Report 14259118 (Version 1)
Quarter: 2017Q4

REPORT INFORMATION
  Report Type: Spontaneous
  Country: US (occurrence: US)
  Receive Date: 20171207
  Receipt Date: 20171207
  Transmission Date: 20180321
  Serious: Yes (Life-Threatening)
  Sender: FDA-Public Use
  Company Number: None

PATIENT
  Age: 79 Year
  Sex: Female
  Weight: 52.2 kg

DRUGS (1)
  1. IBRUTINIB [Suspect]
     Active Substance: IBRUTINIB
     Indication: B-CELL SMALL LYMPHOCYTIC LYMPHOMA RECURRENT
     Dates: start: 20140909, end: 20171127

REACTIONS (7)
  - Cerebral disorder [None]
  - Dizziness [None]
  - Respiratory tract infection fungal [None]
  - Seizure [None]
  - Visual impairment [None]
  - Pulmonary mass [None]
  - Pulmonary necrosis [None]

NARRATIVE: CASE EVENT DATE: 20171129
